FAERS Safety Report 24383606 (Version 1)
Quarter: 2024Q4

REPORT INFORMATION
  Report Type: Spontaneous
  Country: US (occurrence: None)
  Receive Date: 20241001
  Receipt Date: 20241001
  Transmission Date: 20250115
  Serious: Yes (Hospitalization)
  Sender: Public
  Company Number: None

PATIENT
  Sex: Male
  Weight: 70.3 kg

DRUGS (2)
  1. CARBOPLATIN [Suspect]
     Active Substance: CARBOPLATIN
  2. TAXOL [Concomitant]
     Active Substance: PACLITAXEL

REACTIONS (11)
  - Pneumonia [None]
  - Sepsis [None]
  - Pneumonia [None]
  - Emphysema [None]
  - Metastases to adrenals [None]
  - Pneumothorax [None]
  - Embolism [None]
  - Atelectasis [None]
  - Atrial fibrillation [None]
  - Pleural effusion [None]
  - Sinus tachycardia [None]

NARRATIVE: CASE EVENT DATE: 20240913
